FAERS Safety Report 4744259-X (Version None)
Quarter: 2005Q3

REPORT INFORMATION
  Report Type: 
  Country: None (occurrence: None)
  Receive Date: 20050810
  Receipt Date: 20050810
  Transmission Date: 20060218
  Serious: Yes (Other)
  Sender: FDA-Public Use
  Company Number: None

PATIENT
  Age: 19 Year
  Sex: Male
  Weight: 74.4 kg

DRUGS (1)
  1. GAMUNEX [Suspect]
     Indication: IMMUNODEFICIENCY
     Dosage: INTRAVENOU
     Route: 042
     Dates: start: 20050614, end: 20050614

REACTIONS (6)
  - ALOPECIA [None]
  - DIARRHOEA [None]
  - DYSPHAGIA [None]
  - LOCAL SWELLING [None]
  - SWELLING FACE [None]
  - VOMITING [None]
